FAERS Safety Report 20448111 (Version 1)
Quarter: 2022Q1

REPORT INFORMATION
  Report Type: Spontaneous
  Country: IL (occurrence: IL)
  Receive Date: 20220209
  Receipt Date: 20220209
  Transmission Date: 20220423
  Serious: Yes (Other)
  Sender: FDA-Public Use
  Company Number: IL-CELLTRION INC.-2022IL001130

PATIENT

DRUGS (4)
  1. RITUXIMAB [Suspect]
     Active Substance: RITUXIMAB
     Indication: Nephrotic syndrome
     Dosage: FOUR DOSES OF RITUXIMAB AT 375 MG/M2 PER DOSE
  2. RITUXIMAB [Suspect]
     Active Substance: RITUXIMAB
     Indication: Prophylaxis
  3. OFATUMUMAB [Suspect]
     Active Substance: OFATUMUMAB
     Indication: Nephrotic syndrome
     Dosage: ONE 300 MG/1.73M2 TRIAL DOSE AND FIVE ADDITIONAL TREATMENT DOSES OF 2000 MG/1.73 M2 PER DOSE
  4. OFATUMUMAB [Suspect]
     Active Substance: OFATUMUMAB
     Indication: Prophylaxis

REACTIONS (2)
  - End stage renal disease [Unknown]
  - Off label use [Unknown]
